FAERS Safety Report 8998133 (Version 4)
Quarter: 2014Q2

REPORT INFORMATION
  Report Type: Spontaneous
  Country: US (occurrence: US)
  Receive Date: 20130104
  Receipt Date: 20140613
  Transmission Date: 20141212
  Serious: Yes (Hospitalization)
  Sender: FDA-Public Use
  Company Number: US-B.I. PHARMACEUTICALS,INC./RIDGEFIELD-2013-BI-00122BP

PATIENT
  Age: 83 Year
  Sex: Female
  Weight: 79.38 kg

DRUGS (17)
  1. PRADAXA [Suspect]
     Indication: ATRIAL FIBRILLATION
     Route: 065
     Dates: start: 20110819, end: 20120221
  2. PRADAXA [Suspect]
     Indication: ANTICOAGULANT THERAPY
  3. VITAMIN D [Concomitant]
     Dosage: 400 U
     Route: 048
  4. OMEGA 3-6-9 [Concomitant]
     Dosage: 1000 MG
     Route: 048
  5. CENTRUM [Concomitant]
     Route: 048
  6. LIDODERM PATCH [Concomitant]
     Indication: ARTHRITIS
     Route: 065
  7. METANX [Concomitant]
     Route: 048
  8. XANAX [Concomitant]
     Indication: PANIC ATTACK
     Dosage: 0.75 MG
     Route: 048
     Dates: start: 1999
  9. XANAX [Concomitant]
     Indication: DEPRESSION
  10. ZOLOFT [Concomitant]
     Indication: PANIC ATTACK
     Route: 048
     Dates: start: 1999, end: 201307
  11. ZOLOFT [Concomitant]
     Indication: DEPRESSION
  12. VIVELLE SYSTEM [Concomitant]
     Route: 061
  13. ZYRTEC [Concomitant]
     Route: 048
  14. NASACORT NASAL SPRAY [Concomitant]
     Route: 065
  15. ANTIVERT [Concomitant]
     Route: 048
  16. DESONIDE [Concomitant]
     Route: 065
  17. TYLENOL [Concomitant]
     Route: 065

REACTIONS (2)
  - Gastrointestinal haemorrhage [Unknown]
  - Anaemia [Unknown]
